FAERS Safety Report 16381908 (Version 3)
Quarter: 2023Q1

REPORT INFORMATION
  Report Type: Other
  Country: US (occurrence: None)
  Receive Date: 20190603
  Receipt Date: 20230117
  Transmission Date: 20230418
  Serious: Yes (Death, Other)
  Sender: FDA-Public Use
  Company Number: US-ROCHE-2328048

PATIENT
  Age: 18 Month
  Sex: Male

DRUGS (9)
  1. GANCICLOVIR [Suspect]
     Active Substance: GANCICLOVIR
     Indication: Epstein-Barr viraemia
     Route: 065
  2. RITUXIMAB [Suspect]
     Active Substance: RITUXIMAB
     Indication: Epstein-Barr viraemia
     Route: 065
  3. MYCOPHENOLATE MOFETIL [Suspect]
     Active Substance: MYCOPHENOLATE MOFETIL
     Indication: Immunosuppression
     Route: 065
  4. DEXAMETHASONE [Suspect]
     Active Substance: DEXAMETHASONE
     Indication: Product used for unknown indication
     Route: 065
  5. BORTEZOMIB [Suspect]
     Active Substance: BORTEZOMIB
     Indication: Product used for unknown indication
     Route: 065
  6. SIROLIMUS [Suspect]
     Active Substance: SIROLIMUS
     Indication: Immunosuppression
     Route: 065
  7. LAPINE T-LYMPHOCYTE IMMUNE GLOBULIN [Suspect]
     Active Substance: LAPINE T-LYMPHOCYTE IMMUNE GLOBULIN
     Indication: Immunosuppression
     Route: 065
  8. CYCLOSPORINE [Suspect]
     Active Substance: CYCLOSPORINE
     Indication: Immunosuppression
     Route: 065
  9. TACROLIMUS [Suspect]
     Active Substance: TACROLIMUS
     Indication: Immunosuppression
     Route: 065

REACTIONS (9)
  - Multiple organ dysfunction syndrome [Fatal]
  - Tracheitis [Unknown]
  - Escherichia urinary tract infection [Unknown]
  - Post procedural haemorrhage [Unknown]
  - Hypovolaemic shock [Unknown]
  - Ileal perforation [Unknown]
  - Off label use [Unknown]
  - Post transplant lymphoproliferative disorder [Unknown]
  - Epstein-Barr virus infection [Unknown]
